FAERS Safety Report 10195178 (Version 1)
Quarter: 2014Q2

REPORT INFORMATION
  Report Type: Spontaneous
  Country: DE (occurrence: DE)
  Receive Date: 20140526
  Receipt Date: 20140526
  Transmission Date: 20141212
  Serious: Yes (Congenital Anomaly, Other)
  Sender: FDA-Public Use
  Company Number: DE-DRREDDYS-GER/GER/14/0040442

PATIENT
  Age: 0 Year
  Sex: Male
  Weight: .79 kg

DRUGS (5)
  1. LAMOTRIGINE [Suspect]
     Indication: PRODUCT USED FOR UNKNOWN INDICATION
     Route: 064
     Dates: start: 20121208, end: 20130601
  2. FOLSAURE [Concomitant]
     Indication: PRODUCT USED FOR UNKNOWN INDICATION
     Route: 064
     Dates: start: 20121208, end: 20130529
  3. PENHEXAL [Concomitant]
     Indication: PRODUCT USED FOR UNKNOWN INDICATION
     Route: 064
  4. MIFEGYNE [Concomitant]
     Indication: PRODUCT USED FOR UNKNOWN INDICATION
     Route: 064
     Dates: start: 20130529, end: 20130529
  5. CYTOTEC [Concomitant]
     Indication: PRODUCT USED FOR UNKNOWN INDICATION
     Route: 064
     Dates: start: 20130530, end: 20130530

REACTIONS (6)
  - Ventricular septal defect [Not Recovered/Not Resolved]
  - Congenital tricuspid valve atresia [Not Recovered/Not Resolved]
  - Congenital pulmonary valve atresia [Not Recovered/Not Resolved]
  - Double outlet right ventricle [Not Recovered/Not Resolved]
  - Patent ductus arteriosus [Not Recovered/Not Resolved]
  - Foetal exposure during pregnancy [Unknown]
